FAERS Safety Report 8405198-6 (Version None)
Quarter: 2012Q2

REPORT INFORMATION
  Report Type: 
  Country: None (occurrence: None)
  Receive Date: 20120603
  Receipt Date: 20120524
  Transmission Date: 20120825
  Serious: Yes (Hospitalization)
  Sender: FDA-Public Use
  Company Number: JP-VERTEX PHARMACEUTICALS INC.-AE-2012-007852

PATIENT
  Age: 59 Year
  Sex: Male

DRUGS (10)
  1. TELAVIC (TELAPREVIR) [Suspect]
     Indication: HEPATITIS C
     Route: 048
     Dates: start: 20120222, end: 20120320
  2. PEGINTERFERON ALFA-2B [Concomitant]
     Route: 051
     Dates: start: 20120427, end: 20120515
  3. REBETOL [Concomitant]
     Indication: HEPATITIS C
     Route: 048
     Dates: start: 20120222, end: 20120320
  4. REBETOL [Concomitant]
     Route: 048
     Dates: start: 20120328, end: 20120417
  5. PEGINTERFERON ALFA-2B [Concomitant]
     Indication: HEPATITIS C
     Route: 051
     Dates: start: 20120222, end: 20120417
  6. REBETOL [Concomitant]
     Route: 048
     Dates: start: 20120427
  7. REBETOL [Concomitant]
     Route: 048
     Dates: start: 20120321, end: 20120327
  8. PEGINTERFERON ALFA-2B [Concomitant]
     Route: 051
     Dates: start: 20120516
  9. ALLOPURINOL [Concomitant]
     Route: 048
     Dates: end: 20120417
  10. TELAVIC (TELAPREVIR) [Suspect]
     Route: 048
     Dates: start: 20120321, end: 20120417

REACTIONS (1)
  - ERYTHEMA [None]
